FAERS Safety Report 13330135 (Version 2)
Quarter: 2017Q1

REPORT INFORMATION
  Report Type: Spontaneous
  Country: IT (occurrence: IT)
  Receive Date: 20170313
  Receipt Date: 20170317
  Transmission Date: 20170428
  Serious: Yes (Hospitalization)
  Sender: FDA-Public Use
  Company Number: PHHY2017IT034047

PATIENT
  Age: 52 Year
  Sex: Female
  Weight: 70 kg

DRUGS (2)
  1. ETILTOX [Concomitant]
     Active Substance: DISULFIRAM
     Indication: ALCOHOLISM
     Route: 048
  2. CITALOPRAM [Suspect]
     Active Substance: CITALOPRAM HYDROBROMIDE
     Indication: DEPRESSION
     Dosage: 400 MG, ONCE/SINGLE
     Route: 048
     Dates: start: 20160928, end: 20160928

REACTIONS (3)
  - Poisoning [Recovering/Resolving]
  - Intentional self-injury [Recovering/Resolving]
  - Intentional product misuse [Recovering/Resolving]

NARRATIVE: CASE EVENT DATE: 20160928
